FAERS Safety Report 9142672 (Version 2)
Quarter: 2013Q2

REPORT INFORMATION
  Report Type: Spontaneous
  Country: BR (occurrence: BR)
  Receive Date: 20130306
  Receipt Date: 20130408
  Transmission Date: 20140414
  Serious: Yes (Death, Hospitalization, Other)
  Sender: FDA-Public Use
  Company Number: PHHY2012BR089626

PATIENT
  Age: 76 Year
  Sex: Female

DRUGS (2)
  1. DIOVAN AMLO FIX [Suspect]
     Indication: HYPERTENSION
     Dosage: 1 DF (160MG VALS/ 5MG AMLO), DAILY
  2. DIOVAN AMLO FIX [Suspect]
     Dosage: 1 DF (320MG VALS/ 10MG AMLO), DAILY

REACTIONS (10)
  - Infection [Fatal]
  - Pyrexia [Fatal]
  - Coma [Fatal]
  - Intestinal ischaemia [Unknown]
  - Abdominal pain [Unknown]
  - Intestinal mucosal atrophy [Unknown]
  - Dysuria [Not Recovered/Not Resolved]
  - Blood pressure inadequately controlled [Unknown]
  - Nasopharyngitis [Not Recovered/Not Resolved]
  - Constipation [Not Recovered/Not Resolved]
